FAERS Safety Report 18997585 (Version 2)
Quarter: 2021Q1

REPORT INFORMATION
  Report Type: Spontaneous
  Country: ES (occurrence: ES)
  Receive Date: 20210311
  Receipt Date: 20210322
  Transmission Date: 20210420
  Serious: Yes (Other)
  Sender: FDA-Public Use
  Company Number: ES-SA-2021SA022193

PATIENT
  Age: 43 Year
  Sex: Male
  Weight: 74 kg

DRUGS (6)
  1. LANTUS SOLOSTAR [Suspect]
     Active Substance: INSULIN GLARGINE
     Indication: TYPE 2 DIABETES MELLITUS
     Dosage: 28 IU, QD
     Route: 058
     Dates: start: 2001
  2. NOVORAPID [Concomitant]
     Active Substance: INSULIN ASPART
     Indication: TYPE 2 DIABETES MELLITUS
     Dosage: DOSE: AS PER REGIMEN
     Route: 058
  3. ACTRAPID INSULIN NOVO [Concomitant]
     Indication: HYPERGLYCAEMIA
  4. LANTUS SOLOSTAR [Suspect]
     Active Substance: INSULIN GLARGINE
     Dosage: 26 IU, QD
     Route: 058
     Dates: start: 2001
  5. NOVORAPID [Concomitant]
     Active Substance: INSULIN ASPART
     Indication: BLOOD GLUCOSE INCREASED
  6. ACTRAPID INSULIN NOVO [Concomitant]
     Indication: TYPE 2 DIABETES MELLITUS
     Dosage: 14 IU, QD (AS PER REGIMEN)
     Route: 058

REACTIONS (26)
  - Tendon disorder [Recovering/Resolving]
  - Musculoskeletal stiffness [Recovered/Resolved]
  - Weight decreased [Recovering/Resolving]
  - Palpitations [Recovering/Resolving]
  - Burning sensation [Recovered/Resolved]
  - Pallor [Unknown]
  - Discomfort [Recovering/Resolving]
  - Blood glucose increased [Recovered/Resolved]
  - Drug ineffective [Recovered/Resolved]
  - Asthenia [Recovering/Resolving]
  - Drug ineffective [Recovering/Resolving]
  - Myalgia [Unknown]
  - Brain hypoxia [Recovering/Resolving]
  - Product dose omission issue [Unknown]
  - Malaise [Recovering/Resolving]
  - Unevaluable event [Recovering/Resolving]
  - Blood glucose decreased [Unknown]
  - Contusion [Recovered/Resolved]
  - Paraesthesia [Unknown]
  - Condition aggravated [Recovering/Resolving]
  - Feeling of body temperature change [Recovering/Resolving]
  - Contusion [Unknown]
  - Hypoaesthesia [Unknown]
  - Hyperhidrosis [Unknown]
  - Hyperglycaemia [Recovering/Resolving]
  - Injection site pruritus [Recovering/Resolving]

NARRATIVE: CASE EVENT DATE: 20210118
